FAERS Safety Report 15289811 (Version 3)
Quarter: 2024Q1

REPORT INFORMATION
  Report Type: Spontaneous
  Country: IT (occurrence: IT)
  Receive Date: 20180817
  Receipt Date: 20240125
  Transmission Date: 20240410
  Serious: Yes (Other)
  Sender: FDA-Public Use
  Company Number: IT-PFIZER INC-2018328545

PATIENT
  Age: 46 Year
  Sex: Female

DRUGS (3)
  1. PACLITAXEL [Suspect]
     Active Substance: PACLITAXEL
     Indication: Chemotherapy
     Dosage: 260 MG/M2, UNK (EVERY 3 WEEKS)
     Dates: start: 2013
  2. ZOLEDRONIC ACID [Suspect]
     Active Substance: ZOLEDRONIC ACID
     Indication: Chemotherapy
     Dosage: UNK
     Dates: start: 2013
  3. FULVESTRANT [Concomitant]
     Active Substance: FULVESTRANT
     Dosage: 500 MG, UNK
     Dates: start: 201311

REACTIONS (2)
  - Neuropathy peripheral [Unknown]
  - Alopecia [Unknown]
